FAERS Safety Report 23917382 (Version 1)
Quarter: 2024Q2

REPORT INFORMATION
  Report Type: Report from Study
  Country: ZA (occurrence: ZA)
  Receive Date: 20240529
  Receipt Date: 20240529
  Transmission Date: 20240715
  Serious: Yes (Hospitalization)
  Sender: FDA-Public Use
  Company Number: ZA-ABBVIE-5778979

PATIENT
  Age: 47 Year
  Sex: Female

DRUGS (2)
  1. BOTOX [Suspect]
     Active Substance: ONABOTULINUMTOXINA
     Indication: Migraine
     Dosage: TIME INTERVAL: AS NECESSARY: 150 UNITS (100+50), FORM STRENGTH: 50 MG, FREQUENCY: EVERY THREE MONTHS
     Route: 065
     Dates: start: 20240216, end: 20240216
  2. BOTOX [Suspect]
     Active Substance: ONABOTULINUMTOXINA
     Indication: Migraine
     Dosage: TIME INTERVAL: AS NECESSARY: 150 UNITS (100+50),  FORM STRENGTH: 100 MG, FREQUENCY: EVERY THREE M...
     Route: 065
     Dates: start: 20240216, end: 20240216

REACTIONS (1)
  - Malaise [Unknown]
